FAERS Safety Report 9753079 (Version 1)
Quarter: 2013Q4

REPORT INFORMATION
  Report Type: Spontaneous
  Country: US (occurrence: US)
  Receive Date: 20131213
  Receipt Date: 20131213
  Transmission Date: 20140711
  Serious: Yes (Hospitalization)
  Sender: FDA-Public Use
  Company Number: US-BAYER-2013-151011

PATIENT
  Age: 32 Year
  Sex: Female

DRUGS (16)
  1. GIANVI [Suspect]
  2. YAZ [Suspect]
  3. FLEXERIL [Concomitant]
     Dosage: 10 MG, TID
     Dates: start: 20120202, end: 20120430
  4. PRILOSEC [Concomitant]
     Dosage: 20 MG, QD
     Dates: start: 20120202
  5. ULTRAM [Concomitant]
     Dosage: 50 MG, PRN
     Dates: start: 20120202
  6. ALBUTEROL [Concomitant]
     Dosage: 90 MCG 2 PUFFS QID
     Dates: start: 20120202
  7. IBUPROFEN [Concomitant]
     Dosage: 600 MG, TID
     Dates: start: 20120202
  8. IBUPROFEN [Concomitant]
     Dosage: 800 MG, UNK
     Dates: start: 20120209
  9. NAPROXEN [Concomitant]
     Dosage: 250 MG, TID
     Dates: start: 20120202
  10. METRONIDAZOLE [Concomitant]
     Dosage: 500 MG, BID
     Dates: start: 20120202
  11. PROMETHAZINE [Concomitant]
     Dosage: 25 MG, UNK
  12. LYRICA [Concomitant]
     Dosage: UNK
     Dates: start: 20120430
  13. PRISTIQ [Concomitant]
     Dosage: UNK
     Dates: start: 20120430
  14. DILAUDID [Concomitant]
     Indication: PAIN
  15. TUSSIONEX [Concomitant]
     Indication: COUGH
  16. ROCEPHIN [Concomitant]

REACTIONS (1)
  - Pulmonary embolism [None]
